FAERS Safety Report 4370778-4 (Version None)
Quarter: 2004Q2

REPORT INFORMATION
  Report Type: 
  Country: None (occurrence: None)
  Receive Date: 20040601
  Receipt Date: 20040525
  Transmission Date: 20050107
  Serious: Yes (Death)
  Sender: FDA-Public Use
  Company Number: 2004PK00912

PATIENT
  Age: 66 Year
  Sex: Female

DRUGS (2)
  1. SEROQUEL [Suspect]
     Indication: SCHIZOPHRENIA
     Dosage: INCREASING DOSAGE UPTO 600 MG
     Dates: start: 20031101
  2. SEROQUEL [Suspect]
     Indication: SCHIZOPHRENIA
     Dosage: 600 MG DAILY PO
     Route: 048
     Dates: start: 20031201

REACTIONS (3)
  - LEUKOPENIA [None]
  - SEPTIC SHOCK [None]
  - THROMBOCYTOPENIA [None]
